FAERS Safety Report 10305831 (Version 1)
Quarter: 2014Q3

REPORT INFORMATION
  Report Type: Spontaneous
  Country: US (occurrence: None)
  Receive Date: 20140711
  Receipt Date: 20140711
  Transmission Date: 20150326
  Serious: Yes (Other)
  Sender: FDA-Public Use
  Company Number: None

PATIENT
  Age: 43 Year
  Sex: Male
  Weight: 133.81 kg

DRUGS (2)
  1. BENAZEPRIL [Suspect]
     Active Substance: BENAZEPRIL\BENAZEPRIL HYDROCHLORIDE
     Indication: PROPHYLAXIS
     Dosage: 1 PILL DAY, ONCE DAILY, TAKEN BY MOUTH
     Route: 048
     Dates: start: 20140703, end: 20140707
  2. BENAZEPRIL [Suspect]
     Active Substance: BENAZEPRIL\BENAZEPRIL HYDROCHLORIDE
     Indication: RENAL DISORDER
     Dosage: 1 PILL DAY, ONCE DAILY, TAKEN BY MOUTH
     Route: 048
     Dates: start: 20140703, end: 20140707

REACTIONS (6)
  - Diarrhoea [None]
  - Chromaturia [None]
  - Chest pain [None]
  - Joint swelling [None]
  - Peripheral swelling [None]
  - Urine odour abnormal [None]

NARRATIVE: CASE EVENT DATE: 20140705
